FAERS Safety Report 9690892 (Version 1)
Quarter: 2013Q4

REPORT INFORMATION
  Report Type: Spontaneous
  Country: US (occurrence: None)
  Receive Date: 20131114
  Receipt Date: 20131114
  Transmission Date: 20140711
  Serious: Yes (Life-Threatening, Hospitalization, Disabling)
  Sender: FDA-Public Use
  Company Number: None

PATIENT
  Age: 13 Month
  Sex: Female
  Weight: 10 kg

DRUGS (2)
  1. LIDOCAINE VISCOUS [Suspect]
     Indication: TEETHING
     Dates: start: 20130826
  2. LIDOCAINE VISCOUS [Suspect]
     Indication: IRRITABILITY
     Dates: start: 20130826

REACTIONS (7)
  - Accidental exposure to product by child [None]
  - Tremor [None]
  - Apnoea [None]
  - Cardiac arrest [None]
  - Respiratory distress [None]
  - Nervous system disorder [None]
  - Brain injury [None]
